FAERS Safety Report 9394975 (Version 1)
Quarter: 2013Q3

REPORT INFORMATION
  Report Type: Spontaneous
  Country: US (occurrence: US)
  Receive Date: 20130711
  Receipt Date: 20130711
  Transmission Date: 20140515
  Serious: No
  Sender: FDA-Public Use
  Company Number: US-COVIDIEN/TYCO HEALTHCARE/MALLINCKRODT-T201302802

PATIENT
  Age: 53 Year
  Sex: Male
  Weight: 108.84 kg

DRUGS (4)
  1. OXYCODONE [Suspect]
     Indication: ARTHRITIS
     Dosage: 5 MG ONE TO TWO TIMES A DAY PRN
     Route: 048
     Dates: start: 201304
  2. OXYCODONE [Suspect]
     Dosage: 1/4 - 1/2 TAB ONE TO TWO TIMES A DAY PRN
     Route: 048
     Dates: start: 201304
  3. NEXIUM                             /01479302/ [Concomitant]
     Dosage: UNK
     Route: 065
  4. ANTIDEPRESSANTS [Concomitant]
     Dosage: UNK
     Dates: end: 201304

REACTIONS (2)
  - Headache [Recovered/Resolved]
  - Therapeutic response unexpected [Not Recovered/Not Resolved]
